FAERS Safety Report 8482329-3 (Version None)
Quarter: 2012Q3

REPORT INFORMATION
  Report Type: 
  Country: None (occurrence: None)
  Receive Date: 20120702
  Receipt Date: 20120626
  Transmission Date: 20120928
  Serious: Yes (Death)
  Sender: FDA-Public Use
  Company Number: RU-BRISTOL-MYERS SQUIBB COMPANY-16686503

PATIENT
  Age: 73 Year
  Sex: Male

DRUGS (1)
  1. DASATINIB [Suspect]
     Indication: CHRONIC MYELOID LEUKAEMIA
     Route: 048
     Dates: start: 20120301

REACTIONS (4)
  - HAEMORRHAGIC DISORDER [None]
  - MULTI-ORGAN FAILURE [None]
  - BONE MARROW FAILURE [None]
  - PLEURAL EFFUSION [None]
